FAERS Safety Report 4612360-7 (Version None)
Quarter: 2005Q2

REPORT INFORMATION
  Report Type: 
  Country: None (occurrence: None)
  Receive Date: 20050308
  Receipt Date: 20041117
  Transmission Date: 20051028
  Serious: Yes (Other)
  Sender: FDA-Public Use
  Company Number: 2004UW23701

PATIENT
  Age: 83 Year
  Sex: Female
  Weight: 56.699 kg

DRUGS (5)
  1. CRESTOR [Suspect]
     Indication: BLOOD CHOLESTEROL INCREASED
     Dates: start: 20040601
  2. EVISTA [Concomitant]
  3. COZAAR [Concomitant]
  4. OSCAL [Concomitant]
  5. ASPIRIN [Concomitant]

REACTIONS (2)
  - EYE DISORDER [None]
  - HAIR TEXTURE ABNORMAL [None]
